FAERS Safety Report 10190897 (Version 2)
Quarter: 2014Q2

REPORT INFORMATION
  Report Type: Spontaneous
  Country: SE (occurrence: SE)
  Receive Date: 20140523
  Receipt Date: 20140610
  Transmission Date: 20141212
  Serious: Yes (Death)
  Sender: FDA-Public Use
  Company Number: SE-ROCHE-1406378

PATIENT
  Age: 55 Year
  Sex: Female

DRUGS (12)
  1. MABTHERA [Suspect]
     Indication: DIFFUSE LARGE B-CELL LYMPHOMA
     Route: 065
     Dates: start: 20110125, end: 20110405
  2. DEPOCYT [Concomitant]
  3. METHOTREXATE [Concomitant]
  4. CYCLOPHOSPHAMIDE [Concomitant]
  5. HYDROXYDAUNORUBICIN [Concomitant]
  6. ONCOVIN [Concomitant]
  7. ETOPOSIDE [Concomitant]
  8. PREDNISONE [Concomitant]
  9. CYTARABINE [Concomitant]
  10. ALLOPURINOL [Concomitant]
     Route: 065
     Dates: start: 20110121
  11. EUSAPRIM FORTE [Concomitant]
     Route: 065
     Dates: start: 20110121
  12. RASBURICASE [Concomitant]
     Indication: HYPERURICAEMIA
     Route: 065
     Dates: start: 20110121, end: 20110124

REACTIONS (2)
  - Hepatic failure [Fatal]
  - Hepatitis B [Fatal]
